FAERS Safety Report 5423676-9 (Version None)
Quarter: 2007Q3

REPORT INFORMATION
  Report Type: 
  Country: None (occurrence: None)
  Receive Date: 20070823
  Receipt Date: 20070815
  Transmission Date: 20080115
  Serious: Yes (Other)
  Sender: FDA-Public Use
  Company Number: B0481540A

PATIENT
  Age: 75 Year
  Sex: Female
  Weight: 54 kg

DRUGS (11)
  1. AVANDIA [Suspect]
     Dosage: 4MG PER DAY
     Route: 048
  2. METFORMIN HCL [Concomitant]
     Dosage: 1G PER DAY
     Route: 048
  3. ASPIRIN [Concomitant]
     Dosage: 75MG PER DAY
     Route: 048
  4. ISOSORBIDE MONONITRATE [Concomitant]
     Dosage: 40MG PER DAY
  5. LEVOTHYROXINE SODIUM [Concomitant]
     Route: 048
  6. NICARDIPINE HYDROCHLORIDE [Concomitant]
     Route: 048
  7. FRUSEMIDE [Concomitant]
     Dosage: 80MG PER DAY
     Route: 048
  8. GLICLAZIDE [Concomitant]
     Dosage: 80MG TWICE PER DAY
     Route: 048
  9. SENNA [Concomitant]
  10. DOCUSATE [Concomitant]
  11. CODYDRAMOL [Concomitant]

REACTIONS (2)
  - IRON DEFICIENCY ANAEMIA [None]
  - NORMOCHROMIC NORMOCYTIC ANAEMIA [None]
